FAERS Safety Report 9052848 (Version 1)
Quarter: 2013Q1

REPORT INFORMATION
  Report Type: Spontaneous
  Country: BR (occurrence: BR)
  Receive Date: 20130207
  Receipt Date: 20130207
  Transmission Date: 20140127
  Serious: Yes (Other)
  Sender: FDA-Public Use
  Company Number: BR-PFIZER INC-2013050496

PATIENT
  Age: 47 Year
  Sex: Female
  Weight: 80 kg

DRUGS (11)
  1. FRONTAL [Suspect]
     Indication: ANXIETY
     Dosage: 1 MG, 1X/DAY
     Route: 048
     Dates: start: 2003
  2. FRONTAL [Suspect]
     Dosage: TWO TABLETS OF 1 MG DAILY
     Dates: start: 20130205
  3. OMEPRAZOL [Concomitant]
     Indication: GASTRIC DISORDER
     Dosage: 2 TABLETS OF 20 MG, DAILY, CONTINUOUS USE
     Dates: start: 1986
  4. ASPIRIN [Concomitant]
     Dosage: 1 TABLET OF 100 (NO UNIT PROVIDED), DAILY
     Dates: start: 2008
  5. DIOVAN HCT [Concomitant]
     Indication: HYPERTENSION
     Dosage: 1 AND A HALF TABLET OF 160 / 12.5MG, DAILY, IN CONTINUOUS USE
     Dates: start: 2008
  6. PLAVIX [Concomitant]
     Indication: CARDIAC DISORDER
     Dosage: 1 TABLET OF 7.5 MG, DAILY, IN CONTINUOUS USE
     Dates: start: 2008
  7. PROCORALAN [Concomitant]
     Indication: TACHYCARDIA
     Dosage: 2 TABLETS OF 7.5 MG, DAILY, IN CONTINUOUS USE
     Dates: start: 2008
  8. PURINETHOL [Concomitant]
     Indication: CROHN^S DISEASE
     Dosage: 2 TABLETS OF 50 MG, DAILY
     Dates: start: 2002
  9. SACCHAROMYCES BOULARDII [Concomitant]
     Indication: CROHN^S DISEASE
     Dosage: 2 TABLETS OF 100 MG, DAILY
     Dates: start: 1986
  10. SERTRALINE [Concomitant]
     Indication: PANIC DISORDER
     Dosage: 2 TABLETS OF 50 MG, DAILY
     Dates: start: 1998
  11. VYTORIN [Concomitant]
     Indication: CARDIAC DISORDER
     Dosage: 1 TABLET OF 10 / 40MG, DAILY, IN CONTINUOUS USE
     Dates: start: 2008

REACTIONS (3)
  - Infarction [Unknown]
  - Upper limb fracture [Unknown]
  - Abdominal pain upper [Unknown]
